FAERS Safety Report 10037817 (Version 1)
Quarter: 2014Q1

REPORT INFORMATION
  Report Type: Spontaneous
  Country: US (occurrence: None)
  Receive Date: 20140324
  Receipt Date: 20140324
  Transmission Date: 20141002
  Serious: Yes (Other)
  Sender: FDA-Public Use
  Company Number: 2014AP001982

PATIENT
  Age: 42 Year
  Sex: Male
  Weight: 121 kg

DRUGS (14)
  1. RAMIPRIL [Suspect]
     Indication: PROTEINURIA
     Route: 048
     Dates: start: 20090223, end: 20090330
  2. MYCOPHENOLATE [Suspect]
     Indication: IMMUNOSUPPRESSION
     Route: 048
     Dates: start: 20081022
  3. SIROLIMUS [Suspect]
     Indication: PROPHYLAXIS AGAINST TRANSPLANT REJECTION
     Route: 048
     Dates: start: 20090320, end: 20090330
  4. TACROLIMUS [Suspect]
  5. ALENDRONATE SODIUM [Concomitant]
  6. ATORVASTATIN [Concomitant]
  7. CALTRATE [Concomitant]
  8. GLIPIZIDE [Concomitant]
  9. METOPROLOL [Concomitant]
  10. B COMPLETE [Concomitant]
  11. OMPERAZOLE [Concomitant]
  12. BACTRIM [Concomitant]
  13. CIALIS [Concomitant]
  14. VALTREX [Concomitant]

REACTIONS (6)
  - Mouth ulceration [None]
  - Superinfection [None]
  - Enterobacter infection [None]
  - Arthralgia [None]
  - Pyrexia [None]
  - Pain [None]
